FAERS Safety Report 25907910 (Version 1)
Quarter: 2025Q4

REPORT INFORMATION
  Report Type: Report from Study
  Country: EU (occurrence: EU)
  Receive Date: 20251010
  Receipt Date: 20251010
  Transmission Date: 20260117
  Serious: Yes (Hospitalization)
  Sender: MYLAN
  Company Number: EU-JNJFOC-20250925163

PATIENT
  Age: 77 Year
  Sex: Male
  Weight: 71 kg

DRUGS (48)
  1. ABIRATERONE [Suspect]
     Active Substance: ABIRATERONE
     Indication: Prostate cancer
     Dosage: 1500 MILLIGRAM, QD, ON 10-JUL-2023 ABIRATERONE WAS WITHHELD.
     Dates: start: 20230621, end: 20230709
  2. ABIRATERONE [Suspect]
     Active Substance: ABIRATERONE
     Dosage: 1500 MILLIGRAM, QD, ON 10-JUL-2023 ABIRATERONE WAS WITHHELD.
     Dates: start: 20230621, end: 20230709
  3. ABIRATERONE [Suspect]
     Active Substance: ABIRATERONE
     Dosage: 1500 MILLIGRAM, QD, ON 10-JUL-2023 ABIRATERONE WAS WITHHELD.
     Route: 048
     Dates: start: 20230621, end: 20230709
  4. ABIRATERONE [Suspect]
     Active Substance: ABIRATERONE
     Dosage: 1500 MILLIGRAM, QD, ON 10-JUL-2023 ABIRATERONE WAS WITHHELD.
     Route: 048
     Dates: start: 20230621, end: 20230709
  5. ABIRATERONE [Suspect]
     Active Substance: ABIRATERONE
     Dosage: 1000 MILLIGRAM
  6. ABIRATERONE [Suspect]
     Active Substance: ABIRATERONE
     Dosage: 1000 MILLIGRAM
  7. ABIRATERONE [Suspect]
     Active Substance: ABIRATERONE
     Dosage: 1000 MILLIGRAM
     Route: 048
  8. ABIRATERONE [Suspect]
     Active Substance: ABIRATERONE
     Dosage: 1000 MILLIGRAM
     Route: 048
  9. ABIRATERONE [Suspect]
     Active Substance: ABIRATERONE
     Dosage: CONTINUED ACCESS (CA) TREATMENT PHASE
  10. ABIRATERONE [Suspect]
     Active Substance: ABIRATERONE
     Dosage: CONTINUED ACCESS (CA) TREATMENT PHASE
     Route: 048
  11. ABIRATERONE [Suspect]
     Active Substance: ABIRATERONE
     Dosage: CONTINUED ACCESS (CA) TREATMENT PHASE
  12. ABIRATERONE [Suspect]
     Active Substance: ABIRATERONE
     Dosage: CONTINUED ACCESS (CA) TREATMENT PHASE
     Route: 048
  13. PREDNISOLONE [Suspect]
     Active Substance: PREDNISOLONE
     Indication: Prostate cancer
     Dosage: 5 MILLIGRAM, QD
     Dates: start: 20230621, end: 20230713
  14. PREDNISOLONE [Suspect]
     Active Substance: PREDNISOLONE
     Dosage: 5 MILLIGRAM, QD
     Dates: start: 20230621, end: 20230713
  15. PREDNISOLONE [Suspect]
     Active Substance: PREDNISOLONE
     Dosage: 5 MILLIGRAM, QD
     Route: 048
     Dates: start: 20230621, end: 20230713
  16. PREDNISOLONE [Suspect]
     Active Substance: PREDNISOLONE
     Dosage: 5 MILLIGRAM, QD
     Route: 048
     Dates: start: 20230621, end: 20230713
  17. PREDNISOLONE [Suspect]
     Active Substance: PREDNISOLONE
     Dosage: 5 MILLIGRAM
  18. PREDNISOLONE [Suspect]
     Active Substance: PREDNISOLONE
     Dosage: 5 MILLIGRAM
  19. PREDNISOLONE [Suspect]
     Active Substance: PREDNISOLONE
     Dosage: 5 MILLIGRAM
     Route: 048
  20. PREDNISOLONE [Suspect]
     Active Substance: PREDNISOLONE
     Dosage: 5 MILLIGRAM
     Route: 048
  21. PREDNISOLONE [Suspect]
     Active Substance: PREDNISOLONE
     Dosage: UNK
  22. PREDNISOLONE [Suspect]
     Active Substance: PREDNISOLONE
     Dosage: UNK
     Route: 048
  23. PREDNISOLONE [Suspect]
     Active Substance: PREDNISOLONE
     Dosage: UNK
  24. PREDNISOLONE [Suspect]
     Active Substance: PREDNISOLONE
     Dosage: UNK
     Route: 048
  25. ABEMACICLIB [Suspect]
     Active Substance: ABEMACICLIB
     Indication: Prostate cancer
     Dosage: UNK
     Dates: start: 20230621, end: 20230704
  26. ABEMACICLIB [Suspect]
     Active Substance: ABEMACICLIB
     Dosage: UNK
     Dates: start: 20230621, end: 20230704
  27. ABEMACICLIB [Suspect]
     Active Substance: ABEMACICLIB
     Dosage: UNK
     Route: 065
     Dates: start: 20230621, end: 20230704
  28. ABEMACICLIB [Suspect]
     Active Substance: ABEMACICLIB
     Dosage: UNK
     Route: 065
     Dates: start: 20230621, end: 20230704
  29. ABEMACICLIB [Suspect]
     Active Substance: ABEMACICLIB
     Dosage: UNK
     Dates: start: 20230802, end: 20230815
  30. ABEMACICLIB [Suspect]
     Active Substance: ABEMACICLIB
     Dosage: UNK
     Dates: start: 20230802, end: 20230815
  31. ABEMACICLIB [Suspect]
     Active Substance: ABEMACICLIB
     Dosage: UNK
     Route: 065
     Dates: start: 20230802, end: 20230815
  32. ABEMACICLIB [Suspect]
     Active Substance: ABEMACICLIB
     Dosage: UNK
     Route: 065
     Dates: start: 20230802, end: 20230815
  33. ABEMACICLIB [Suspect]
     Active Substance: ABEMACICLIB
     Dosage: UNK
     Dates: start: 20230906, end: 20240228
  34. ABEMACICLIB [Suspect]
     Active Substance: ABEMACICLIB
     Dosage: UNK
     Route: 065
     Dates: start: 20230906, end: 20240228
  35. ABEMACICLIB [Suspect]
     Active Substance: ABEMACICLIB
     Dosage: UNK
     Dates: start: 20230906, end: 20240228
  36. ABEMACICLIB [Suspect]
     Active Substance: ABEMACICLIB
     Dosage: UNK
     Route: 065
     Dates: start: 20230906, end: 20240228
  37. BISOPROLOL FUMARATE [Concomitant]
     Active Substance: BISOPROLOL FUMARATE
     Indication: Product used for unknown indication
     Dosage: UNK
  38. BISOPROLOL FUMARATE [Concomitant]
     Active Substance: BISOPROLOL FUMARATE
     Dosage: UNK
     Route: 065
  39. BISOPROLOL FUMARATE [Concomitant]
     Active Substance: BISOPROLOL FUMARATE
     Dosage: UNK
     Route: 065
  40. BISOPROLOL FUMARATE [Concomitant]
     Active Substance: BISOPROLOL FUMARATE
     Dosage: UNK
  41. ASS Protect [Concomitant]
     Indication: Product used for unknown indication
     Dosage: UNK
  42. ASS Protect [Concomitant]
     Dosage: UNK
     Route: 065
  43. ASS Protect [Concomitant]
     Dosage: UNK
     Route: 065
  44. ASS Protect [Concomitant]
     Dosage: UNK
  45. SIMVASTATIN [Concomitant]
     Active Substance: SIMVASTATIN
     Indication: Product used for unknown indication
     Dosage: UNK
  46. SIMVASTATIN [Concomitant]
     Active Substance: SIMVASTATIN
     Dosage: UNK
     Route: 065
  47. SIMVASTATIN [Concomitant]
     Active Substance: SIMVASTATIN
     Dosage: UNK
     Route: 065
  48. SIMVASTATIN [Concomitant]
     Active Substance: SIMVASTATIN
     Dosage: UNK

REACTIONS (3)
  - Prostate cancer metastatic [Recovered/Resolved]
  - Spinal cord compression [Unknown]
  - Blood creatinine increased [Unknown]

NARRATIVE: CASE EVENT DATE: 20230705
